FAERS Safety Report 13705681 (Version 1)
Quarter: 2017Q2

REPORT INFORMATION
  Report Type: Spontaneous
  Country: IT (occurrence: IT)
  Receive Date: 20170630
  Receipt Date: 20170630
  Transmission Date: 20170830
  Serious: Yes (Life-Threatening, Hospitalization, Other)
  Sender: FDA-Public Use
  Company Number: IT-SWEDISH ORPHAN INTERNATIONAL AB-2017IT0620

PATIENT
  Age: 42 Year
  Sex: Female
  Weight: 50 kg

DRUGS (7)
  1. KINERET [Suspect]
     Active Substance: ANAKINRA
     Indication: STILL^S DISEASE
     Route: 058
  2. KINERET [Suspect]
     Active Substance: ANAKINRA
     Route: 058
  3. KINERET [Suspect]
     Active Substance: ANAKINRA
     Route: 058
  4. CYCLOSPORINE. [Concomitant]
     Active Substance: CYCLOSPORINE
     Dosage: INTRAVENOUS 3 MG/KG/D, INCREASED TO 5 MG/KG
     Route: 042
  5. METHYLPREDNISOLONE. [Concomitant]
     Active Substance: METHYLPREDNISOLONE
     Route: 042
  6. CYCLOSPORINE. [Concomitant]
     Active Substance: CYCLOSPORINE
     Dosage: INTRAVENOUS 3 MG/KG/D, INCREASED TO 5 MG/KG
     Route: 042
  7. METHYLPREDNISOLONE. [Concomitant]
     Active Substance: METHYLPREDNISOLONE
     Route: 042

REACTIONS (4)
  - Cardiac arrest [Recovered/Resolved]
  - Bone marrow failure [Recovered/Resolved]
  - Urinary tract infection [Recovered/Resolved]
  - Sepsis [Recovered/Resolved]
